FAERS Safety Report 9503024 (Version 2)
Quarter: 2013Q3

REPORT INFORMATION
  Report Type: Spontaneous
  Country: JP (occurrence: JP)
  Receive Date: 20130906
  Receipt Date: 20130919
  Transmission Date: 20140515
  Serious: Yes (Other)
  Sender: FDA-Public Use
  Company Number: JP-ASTELLAS-2013JP009125

PATIENT
  Age: 82 Year
  Sex: Male

DRUGS (3)
  1. VESICARE [Suspect]
     Dosage: 2.5 MG, UID/QD
     Route: 048
  2. ZOLPIDEM [Suspect]
     Dosage: UNK
     Route: 048
  3. MYSLEE [Concomitant]
     Route: 048

REACTIONS (1)
  - Hyponatraemia [Recovered/Resolved]
